FAERS Safety Report 12341207 (Version 1)
Quarter: 2016Q2

REPORT INFORMATION
  Report Type: Spontaneous
  Country: IT (occurrence: None)
  Receive Date: 20160429
  Receipt Date: 20160429
  Transmission Date: 20160815
  Serious: Yes (Hospitalization)
  Sender: FDA-Public Use
  Company Number: IT-005390

PATIENT
  Age: 15 Year
  Sex: Female

DRUGS (2)
  1. SONOVUE (SULPHUR HEXAFLUORIDE) [Suspect]
     Active Substance: SULFUR HEXAFLUORIDE
     Indication: HEPATIC LESION
     Dates: start: 20160408, end: 20160408
  2. SONOVUE (SULPHUR HEXAFLUORIDE) [Suspect]
     Active Substance: SULFUR HEXAFLUORIDE
     Indication: ULTRASOUND SCAN
     Dates: start: 20160408, end: 20160408

REACTIONS (5)
  - Abdominal pain [None]
  - Nausea [None]
  - Visual impairment [None]
  - Diarrhoea [None]
  - Hypotension [None]

NARRATIVE: CASE EVENT DATE: 20160408
